FAERS Safety Report 8487346-5 (Version None)
Quarter: 2012Q3

REPORT INFORMATION
  Report Type: 
  Country: None (occurrence: None)
  Receive Date: 20120705
  Receipt Date: 20120626
  Transmission Date: 20120928
  Serious: Yes (Hospitalization)
  Sender: FDA-Public Use
  Company Number: AU-VERTEX PHARMACEUTICALS INC.-000000000000000086

PATIENT
  Sex: Male
  Weight: 66.8 kg

DRUGS (10)
  1. RIBAVIRIN [Concomitant]
     Route: 048
     Dates: start: 20120110
  2. TELAPREVIR [Suspect]
     Indication: HEPATITIS C
     Dosage: DOSAGE FORM: TABLET
     Route: 048
     Dates: start: 20111111, end: 20120203
  3. PEGINTERFERON ALFA-2A [Concomitant]
     Indication: HEPATITIS C
     Dosage: DOSAGE FORM: UNKNOWN
     Route: 058
  4. AMPHOTERICIN B [Concomitant]
     Dates: start: 20111226, end: 20120222
  5. COLOXYL W/SENNA [Concomitant]
  6. RIBAVIRIN [Concomitant]
     Indication: HEPATITIS C
     Route: 048
     Dates: start: 20111111, end: 20120109
  7. METOCLOPRAMIDE [Concomitant]
  8. NEXIUM [Concomitant]
  9. AMPHOTERICIN B [Concomitant]
  10. LACTULOSE [Concomitant]
     Route: 048

REACTIONS (4)
  - DEHYDRATION [None]
  - ORAL CANDIDIASIS [None]
  - ANAEMIA [None]
  - WEIGHT DECREASED [None]
